FAERS Safety Report 9347526 (Version 2)
Quarter: 2013Q3

REPORT INFORMATION
  Report Type: Report from Study
  Country: AU (occurrence: AU)
  Receive Date: 20130614
  Receipt Date: 20130701
  Transmission Date: 20140515
  Serious: Yes (Hospitalization)
  Sender: FDA-Public Use
  Company Number: AU-BIOGENIDEC-2013BI051819

PATIENT
  Age: 29 Year
  Sex: Male

DRUGS (8)
  1. MULTIVITAMIN [Concomitant]
     Indication: ROUTINE HEALTH MAINTENANCE
     Dates: start: 20000101
  2. TYSABRI [Suspect]
     Indication: RELAPSING-REMITTING MULTIPLE SCLEROSIS
     Dates: start: 20090604
  3. FISH OIL [Concomitant]
     Indication: ROUTINE HEALTH MAINTENANCE
     Dates: start: 20080101
  4. GLIMEPIRIDE [Concomitant]
     Indication: DIABETES MELLITUS
     Dates: start: 20130101
  5. CRESTOR [Concomitant]
     Indication: BLOOD CHOLESTEROL INCREASED
     Dates: start: 20080101
  6. DIABEX XR [Concomitant]
     Indication: DIABETES MELLITUS
     Dates: start: 20130101
  7. MAGNESIUM [Concomitant]
     Indication: ROUTINE HEALTH MAINTENANCE
     Dates: start: 20130101
  8. VITAMIN D [Concomitant]
     Indication: ROUTINE HEALTH MAINTENANCE
     Dates: start: 20000101

REACTIONS (2)
  - Urinary retention [Recovered/Resolved]
  - Haematuria [Recovered/Resolved]
